FAERS Safety Report 4592984-6 (Version None)
Quarter: 2005Q1

REPORT INFORMATION
  Report Type: 
  Country: None (occurrence: None)
  Receive Date: 20050228
  Receipt Date: 20050221
  Transmission Date: 20050727
  Serious: Yes (Other)
  Sender: FDA-Public Use
  Company Number: PHFR2005GB00974

PATIENT
  Age: 37 Year
  Sex: Male

DRUGS (2)
  1. TEGRETOL [Suspect]
     Indication: TRIGEMINAL NEURALGIA
     Dosage: UNK, UNK
     Dates: start: 20050101
  2. BUPRENORPHINE [Concomitant]

REACTIONS (1)
  - WEIGHT INCREASED [None]
